FAERS Safety Report 7763951-6 (Version None)
Quarter: 2011Q3

REPORT INFORMATION
  Report Type: 
  Country: None (occurrence: None)
  Receive Date: 20110916
  Receipt Date: 20110905
  Transmission Date: 20111222
  Serious: Yes (Hospitalization)
  Sender: FDA-Public Use
  Company Number: DSJ-2011-19824

PATIENT
  Age: 75 Year
  Sex: Male

DRUGS (5)
  1. GLUCOSAMINE/CHONDROITIN (GLUCOSAMINE, CHONDROITIN SULFATE)(GLUCOSAMINE [Concomitant]
  2. BENICAR [Suspect]
     Indication: HYPERTENSION
     Dosage: 40 MG (40 MG, 1IN 1 D),PER ORAL
     Route: 048
     Dates: start: 20091101
  3. ALENDRONATE SODIUM (ALENDRONATE SODIUM)(ALENDRONATE SODIUM) [Concomitant]
  4. OMEPRAZOLE [Concomitant]
  5. CALCIUM CARBONATE (CALCIUM CARBONATE)(CALCIUM CARBONATE) [Concomitant]

REACTIONS (2)
  - CALCULUS URINARY [None]
  - CATHETER PLACEMENT [None]
